FAERS Safety Report 9192024 (Version 1)
Quarter: 2013Q1

REPORT INFORMATION
  Report Type: Spontaneous
  Country: US (occurrence: None)
  Receive Date: 20120703
  Receipt Date: 20120703
  Transmission Date: 20140127
  Serious: Yes (Other)
  Sender: FDA-Public Use
  Company Number: PHEH2012US009081

PATIENT
  Age: 51 Year
  Sex: Male

DRUGS (1)
  1. GILENYA (FTY)CAPSULE, 0.5 MG [Suspect]
     Indication: MULTIPLE SCLEROSIS
     Route: 048
     Dates: start: 20110426

REACTIONS (6)
  - Ophthalmic herpes simplex [None]
  - Impaired healing [None]
  - Scratch [None]
  - Memory impairment [None]
  - Insomnia [None]
  - Visual impairment [None]
